FAERS Safety Report 13197086 (Version 1)
Quarter: 2017Q1

REPORT INFORMATION
  Report Type: Spontaneous
  Country: US (occurrence: US)
  Receive Date: 20170208
  Receipt Date: 20170208
  Transmission Date: 20170428
  Serious: No
  Sender: FDA-Public Use
  Company Number: US-009507513-1701USA014143

PATIENT
  Sex: Female

DRUGS (1)
  1. NEXPLANON [Suspect]
     Active Substance: ETONOGESTREL
     Dosage: 68 MG (1 UNIT), UNK
     Route: 059

REACTIONS (4)
  - Product quality issue [Unknown]
  - Complication of device insertion [Unknown]
  - Device difficult to use [Unknown]
  - No adverse event [Unknown]
